FAERS Safety Report 11325379 (Version 2)
Quarter: 2016Q4

REPORT INFORMATION
  Report Type: Spontaneous
  Country: US (occurrence: US)
  Receive Date: 20150730
  Receipt Date: 20161202
  Transmission Date: 20170206
  Serious: No
  Sender: FDA-Public Use
  Company Number: US-LUNDBECK-DKLU2001884

PATIENT
  Sex: Male

DRUGS (1)
  1. NORTHERA [Suspect]
     Active Substance: DROXIDOPA
     Indication: PRODUCT USED FOR UNKNOWN INDICATION
     Route: 065

REACTIONS (6)
  - Presyncope [Unknown]
  - Muscular weakness [Unknown]
  - Syncope [Unknown]
  - Dizziness [Unknown]
  - Orthostatic hypotension [Unknown]
  - Drug dose omission [Unknown]
